FAERS Safety Report 22598426 (Version 1)
Quarter: 2023Q2

REPORT INFORMATION
  Report Type: Spontaneous
  Country: CA (occurrence: CA)
  Receive Date: 20230614
  Receipt Date: 20230614
  Transmission Date: 20230722
  Serious: Yes (Other)
  Sender: FDA-Public Use
  Company Number: CA-CELLTRION INC.-2022CA019764

PATIENT

DRUGS (27)
  1. YUFLYMA [Suspect]
     Active Substance: ADALIMUMAB-AATY
     Indication: Psoriatic arthropathy
     Dosage: 40MG
     Route: 058
     Dates: start: 20221027
  2. YUFLYMA [Suspect]
     Active Substance: ADALIMUMAB-AATY
     Indication: Inflammatory bowel disease
     Dosage: WEEK 0:160 MILLIGRAM, Q2WEEKS
     Route: 058
  3. YUFLYMA [Suspect]
     Active Substance: ADALIMUMAB-AATY
     Dosage: WEEK 2: 80 MILLIGRAM, Q2WEEKS
     Route: 058
  4. YUFLYMA [Suspect]
     Active Substance: ADALIMUMAB-AATY
     Dosage: WEEK 4: 40 MILLIGRAM, Q2WEEKS
     Route: 058
     Dates: start: 20221110
  5. YUFLYMA [Suspect]
     Active Substance: ADALIMUMAB-AATY
     Dosage: 40 MILLIGRAM, Q2WEEKS (2 YULFYMA INJECTIONS)
     Route: 058
     Dates: start: 20230127
  6. CITALOPRAM [Concomitant]
     Active Substance: CITALOPRAM HYDROBROMIDE
     Dosage: UNK
  7. ENTOCORT [Concomitant]
     Active Substance: BUDESONIDE
  8. ALPRAZOLAM [Concomitant]
     Active Substance: ALPRAZOLAM
  9. MESALAMINE [Concomitant]
     Active Substance: MESALAMINE
  10. PANTOPRAZOLE [Concomitant]
     Active Substance: PANTOPRAZOLE
  11. DESONIDE [Concomitant]
     Active Substance: DESONIDE
  12. SYNTHROID [Concomitant]
     Active Substance: LEVOTHYROXINE SODIUM
  13. PREGABALIN [Concomitant]
     Active Substance: PREGABALIN
  14. IRBESARTAN [Concomitant]
     Active Substance: IRBESARTAN
     Route: 065
  15. CHOLECALCIFEROL [Concomitant]
     Active Substance: CHOLECALCIFEROL
  16. IRON [Concomitant]
     Active Substance: IRON
  17. COLLAGEN [Concomitant]
     Active Substance: COLLAGEN
  18. LACTASE [Concomitant]
     Active Substance: LACTASE
  19. POLYETHYLENE GLYCOL 3350 [Concomitant]
     Active Substance: POLYETHYLENE GLYCOL 3350
  20. VITAMINS [Concomitant]
     Active Substance: VITAMINS
  21. DEXTROSE\ELECTROLYTES NOS [Concomitant]
     Active Substance: DEXTROSE\ELECTROLYTES NOS
  22. HERBALS [Concomitant]
     Active Substance: HERBALS
  23. CYANOCOBALAMIN [Concomitant]
     Active Substance: CYANOCOBALAMIN
  24. POLYETHYLENE GLYCOL 3350 [Concomitant]
     Active Substance: POLYETHYLENE GLYCOL 3350
  25. VITAMIN D3 [Concomitant]
     Active Substance: CHOLECALCIFEROL
  26. VITAMINS NOS [Concomitant]
     Active Substance: VITAMINS
  27. ELECTROLYTES NOS;GLUCOSE [Concomitant]

REACTIONS (19)
  - Crohn^s disease [Unknown]
  - Condition aggravated [Unknown]
  - Gait disturbance [Unknown]
  - Bone pain [Unknown]
  - Faeces hard [Unknown]
  - Fear of open spaces [Unknown]
  - Frequent bowel movements [Unknown]
  - Stress [Unknown]
  - Decreased appetite [Unknown]
  - Emotional poverty [Unknown]
  - Blood iron decreased [Unknown]
  - Fall [Unknown]
  - Balance disorder [Unknown]
  - Asthenia [Unknown]
  - Depression [Unknown]
  - Dizziness [Unknown]
  - Insomnia [Unknown]
  - Weight decreased [Unknown]
  - Intentional product use issue [Unknown]
